FAERS Safety Report 10135920 (Version 1)
Quarter: 2014Q2

REPORT INFORMATION
  Report Type: Spontaneous
  Country: US (occurrence: US)
  Receive Date: 20140429
  Receipt Date: 20140429
  Transmission Date: 20141212
  Serious: No
  Sender: FDA-Public Use
  Company Number: US-009507513-1404USA013609

PATIENT
  Sex: Female
  Weight: 59.68 kg

DRUGS (1)
  1. NEXPLANON [Suspect]
     Indication: CONTRACEPTION
     Dosage: 1 DF,ONE SINGLE ROD
     Route: 059
     Dates: start: 20140218

REACTIONS (1)
  - Rash [Recovering/Resolving]
